FAERS Safety Report 23803553 (Version 1)
Quarter: 2024Q2

REPORT INFORMATION
  Report Type: Spontaneous
  Country: US (occurrence: None)
  Receive Date: 20240430
  Receipt Date: 20240430
  Transmission Date: 20240716
  Serious: Yes (Hospitalization)
  Sender: FDA-Public Use
  Company Number: None

PATIENT
  Sex: Female

DRUGS (3)
  1. EPOPROSTENOL [Suspect]
     Active Substance: EPOPROSTENOL
     Indication: Pulmonary arterial hypertension
     Dosage: OTHER QUANTITY : 45 NG/KG/MIN?OTHER FREQUENCY : CONTINUOUS?OTHER ROUTE : CONTINUOUS?
     Route: 050
     Dates: start: 202312
  2. ADEMPAS [Concomitant]
     Active Substance: RIOCIGUAT
  3. OPSUVIT [Concomitant]

REACTIONS (2)
  - Catheter site haemorrhage [None]
  - Therapy interrupted [None]
